FAERS Safety Report 12947937 (Version 1)
Quarter: 2016Q4

REPORT INFORMATION
  Report Type: Spontaneous
  Country: AT (occurrence: AT)
  Receive Date: 20161117
  Receipt Date: 20161117
  Transmission Date: 20170207
  Serious: Yes (Hospitalization)
  Sender: FDA-Public Use
  Company Number: AT-ASTRAZENECA-2016SF18596

PATIENT
  Sex: Male

DRUGS (2)
  1. DORMICUM [Concomitant]
     Active Substance: MIDAZOLAM\MIDAZOLAM HYDROCHLORIDE
     Route: 065
  2. CASODEX [Suspect]
     Active Substance: BICALUTAMIDE
     Dosage: 150.0MG UNKNOWN
     Route: 048

REACTIONS (1)
  - Coma [Unknown]
